FAERS Safety Report 4489892-8 (Version None)
Quarter: 2004Q4

REPORT INFORMATION
  Report Type: 
  Country: None (occurrence: None)
  Receive Date: 20041026
  Receipt Date: 20041015
  Transmission Date: 20050328
  Serious: Yes (Hospitalization)
  Sender: FDA-Public Use
  Company Number: 230021M04SWE

PATIENT
  Age: 24 Year
  Sex: Female

DRUGS (1)
  1. REBIF [Suspect]
     Indication: MULTIPLE SCLEROSIS
     Dosage: 22 MCG, 3 IN 1 WEEKS, SUBCUTANEOUS
     Route: 057
     Dates: start: 20010201, end: 20020808

REACTIONS (3)
  - AUTOIMMUNE THYROIDITIS [None]
  - DIABETES MELLITUS INSULIN-DEPENDENT [None]
  - HYPOTHYROIDISM [None]
